FAERS Safety Report 5469955-0 (Version None)
Quarter: 2007Q3

REPORT INFORMATION
  Report Type: 
  Country: None (occurrence: None)
  Receive Date: 20070927
  Receipt Date: 20070917
  Transmission Date: 20080115
  Serious: Yes (Hospitalization)
  Sender: FDA-Public Use
  Company Number: FR-SANOFI-SYNTHELABO-A02200702726

PATIENT
  Sex: Female
  Weight: 59 kg

DRUGS (9)
  1. DETENSIEL [Suspect]
     Indication: DRUG USE FOR UNKNOWN INDICATION
     Route: 048
     Dates: start: 20070601, end: 20070601
  2. SOPROL [Suspect]
     Indication: HYPERTENSION
     Route: 048
     Dates: end: 20070601
  3. ZOLPIDEM TARTRATE [Suspect]
     Indication: DRUG USE FOR UNKNOWN INDICATION
     Route: 048
  4. CACIT D3 [Concomitant]
     Indication: DRUG USE FOR UNKNOWN INDICATION
     Route: 065
  5. SEROPRAM [Concomitant]
     Indication: DRUG USE FOR UNKNOWN INDICATION
     Route: 048
  6. ELISOR [Concomitant]
     Indication: DRUG USE FOR UNKNOWN INDICATION
     Route: 048
  7. KARDEGIC [Concomitant]
     Indication: DRUG USE FOR UNKNOWN INDICATION
     Route: 048
  8. CO-RENITEC [Concomitant]
     Indication: HYPERTENSION
     Route: 048
  9. LOXEN [Suspect]
     Indication: HYPERTENSION
     Route: 048
     Dates: end: 20070601

REACTIONS (3)
  - BRADYCARDIA [None]
  - FALL [None]
  - LOSS OF CONSCIOUSNESS [None]
